FAERS Safety Report 9148017 (Version 2)
Quarter: 2013Q2

REPORT INFORMATION
  Report Type: Spontaneous
  Country: US (occurrence: US)
  Receive Date: 20130308
  Receipt Date: 20130502
  Transmission Date: 20140414
  Serious: Yes (Other)
  Sender: FDA-Public Use
  Company Number: US-AMGEN-USASP2013013984

PATIENT
  Age: 68 Year
  Sex: Female
  Weight: 88.89 kg

DRUGS (3)
  1. PROCRIT [Suspect]
     Indication: ANAEMIA
     Dosage: 20000 UNITS/1ML/ EVERY 6 MONTH AS NECESSARY
     Route: 058
     Dates: start: 2011
  2. HUMALOG [Concomitant]
     Indication: DIABETES MELLITUS
     Dosage: UNK
     Route: 058
  3. LANTUS [Concomitant]
     Dosage: 32 UNIT, UNK

REACTIONS (4)
  - Hepatic steatosis [Unknown]
  - Red blood cell count abnormal [Not Recovered/Not Resolved]
  - Haemoglobin abnormal [Not Recovered/Not Resolved]
  - Oedema peripheral [Not Recovered/Not Resolved]
